FAERS Safety Report 4804341-5 (Version None)
Quarter: 2005Q4

REPORT INFORMATION
  Report Type: 
  Country: None (occurrence: None)
  Receive Date: 20051018
  Receipt Date: 20051018
  Transmission Date: 20060501
  Serious: Yes (Death)
  Sender: FDA-Public Use
  Company Number: None

PATIENT
  Age: 69 Year
  Sex: Female

DRUGS (2)
  1. ATRA (10 MG TABLETS) [Suspect]
  2. DAUNORUBICIN [Suspect]

REACTIONS (12)
  - ARRHYTHMIA [None]
  - CARDIAC ENZYMES INCREASED [None]
  - CHEST PAIN [None]
  - CONVULSION [None]
  - DYSPNOEA [None]
  - HEADACHE [None]
  - HYPOXIA [None]
  - LOSS OF CONSCIOUSNESS [None]
  - MUSCULOSKELETAL STIFFNESS [None]
  - MYOCARDIAL INFARCTION [None]
  - RETINOIC ACID SYNDROME [None]
  - SUBDURAL HAEMATOMA [None]
